FAERS Safety Report 7395782-3 (Version None)
Quarter: 2011Q2

REPORT INFORMATION
  Report Type: 
  Country: None (occurrence: None)
  Receive Date: 20110405
  Receipt Date: 20110329
  Transmission Date: 20111010
  Serious: Yes (Death)
  Sender: FDA-Public Use
  Company Number: US-BAXTER-2011BH008635

PATIENT
  Sex: Female

DRUGS (4)
  1. TAMOXIFEN [Suspect]
     Indication: BREAST CANCER
     Route: 065
  2. CYCLOPHOSPHAMIDE [Suspect]
     Indication: BREAST CANCER
     Route: 065
  3. DOXORUBICIN GENERIC [Suspect]
     Indication: BREAST CANCER
     Route: 065
  4. DOCETAXEL [Suspect]
     Indication: BREAST CANCER
     Route: 065

REACTIONS (1)
  - DEATH [None]
